FAERS Safety Report 6179360-X (Version None)
Quarter: 2009Q2

REPORT INFORMATION
  Report Type: 
  Country: None (occurrence: None)
  Receive Date: 20090505
  Receipt Date: 20090430
  Transmission Date: 20091009
  Serious: No
  Sender: FDA-Public Use
  Company Number: US-B.I. PHARMACEUTICALS,INC./RIDGEFIELD-2009-BP-05496BP

PATIENT
  Sex: Female

DRUGS (1)
  1. SPIRIVA [Suspect]
     Indication: BRONCHIAL DISORDER
     Dosage: 18MCG
     Route: 055
     Dates: start: 20070101

REACTIONS (2)
  - GLOSSODYNIA [None]
  - TONGUE DISORDER [None]
